FAERS Safety Report 19916015 (Version 3)
Quarter: 2022Q1

REPORT INFORMATION
  Report Type: Report from Study
  Country: US (occurrence: US)
  Receive Date: 20211005
  Receipt Date: 20220119
  Transmission Date: 20220423
  Serious: No
  Sender: FDA-Public Use
  Company Number: NVSC2021US222775

PATIENT
  Sex: Female

DRUGS (1)
  1. KESIMPTA [Suspect]
     Active Substance: OFATUMUMAB
     Indication: Multiple sclerosis
     Dosage: UNK UNK, QMO
     Route: 058

REACTIONS (5)
  - Malaise [Recovered/Resolved]
  - Memory impairment [Unknown]
  - Burning sensation [Unknown]
  - Injection site bruising [Unknown]
  - Vascular injury [Unknown]
